FAERS Safety Report 7540453-3 (Version None)
Quarter: 2011Q2

REPORT INFORMATION
  Report Type: 
  Country: None (occurrence: None)
  Receive Date: 20110610
  Receipt Date: 20110601
  Transmission Date: 20111010
  Serious: Yes (Disabling)
  Sender: FDA-Public Use
  Company Number: US-ASTRAZENECA-2010SE36447

PATIENT
  Sex: Female

DRUGS (4)
  1. SEROQUEL [Suspect]
     Route: 048
  2. SEROQUEL [Suspect]
     Route: 048
  3. LIDOCAINE [Suspect]
     Route: 065
  4. SEROQUEL [Suspect]
     Indication: DEPRESSION
     Route: 048

REACTIONS (9)
  - MENTAL DISABILITY [None]
  - THERAPEUTIC RESPONSE UNEXPECTED [None]
  - EMOTIONAL DISORDER [None]
  - DRUG HYPERSENSITIVITY [None]
  - DRUG DOSE OMISSION [None]
  - INSOMNIA [None]
  - PHYSICAL DISABILITY [None]
  - DEPRESSION [None]
  - NIGHTMARE [None]
